FAERS Safety Report 6438531-5 (Version None)
Quarter: 2009Q4

REPORT INFORMATION
  Report Type: 
  Country: None (occurrence: None)
  Receive Date: 20091109
  Receipt Date: 20090909
  Transmission Date: 20100525
  Serious: Yes (Hospitalization)
  Sender: FDA-Public Use
  Company Number: 310003L09JPN

PATIENT
  Age: 25 Year
  Sex: Female

DRUGS (2)
  1. FOLLITROPIN ALPHA (FOLLITROPIN ALFA) [Suspect]
     Indication: INFERTILITY
  2. CHORIONIC GONADOTROPIN [Suspect]
     Indication: INFERTILITY

REACTIONS (11)
  - ASCITES [None]
  - DRUG EXPOSURE BEFORE PREGNANCY [None]
  - GENITAL HAEMORRHAGE [None]
  - INADEQUATE ANALGESIA [None]
  - INTRA-UTERINE DEATH [None]
  - MULTIPLE PREGNANCY [None]
  - OVARIAN ENLARGEMENT [None]
  - OVARIAN HYPERSTIMULATION SYNDROME [None]
  - OVARIAN NECROSIS [None]
  - OVARIAN TORSION [None]
  - POLYCYSTIC OVARIES [None]
